FAERS Safety Report 10411782 (Version 4)
Quarter: 2015Q2

REPORT INFORMATION
  Report Type: Spontaneous
  Country: JP (occurrence: JP)
  Receive Date: 20140827
  Receipt Date: 20150626
  Transmission Date: 20150821
  Serious: Yes (Hospitalization, Other)
  Sender: FDA-Public Use
  Company Number: JP-UCBSA-2014009968

PATIENT
  Age: 72 Year
  Sex: Male

DRUGS (13)
  1. METOLATE [Concomitant]
     Active Substance: METHOTREXATE
     Dosage: 8 MG, UNK
     Route: 048
     Dates: start: 20071202
  2. FOLIAMIN [Concomitant]
     Active Substance: FOLIC ACID
     Dosage: 10 MG, UNK
     Route: 048
     Dates: start: 20071202
  3. EUGLUCON [Concomitant]
     Active Substance: GLYBURIDE
     Dosage: 20 MG, UNK
     Route: 048
  4. ACTOS [Concomitant]
     Active Substance: PIOGLITAZONE HYDROCHLORIDE
     Dosage: 15 MG, UNK
     Route: 048
  5. UNISIA [Concomitant]
     Active Substance: AMLODIPINE BESYLATE\CANDESARTAN CILEXETIL
     Dosage: 1 DF, UNK
     Route: 048
  6. CIMZIA [Suspect]
     Active Substance: CERTOLIZUMAB PEGOL
     Indication: RHEUMATOID ARTHRITIS
     Dosage: 200 MG, EV 2 WEEKS(QOW), BIWEEKLY
     Route: 058
     Dates: start: 20140327, end: 20140423
  7. LANSOPRAZOLE. [Concomitant]
     Active Substance: LANSOPRAZOLE
     Dosage: 15 MG, UNK
     Route: 048
     Dates: start: 2009
  8. BUP-4 [Concomitant]
     Active Substance: PROPIVERINE
     Dosage: 20 MG, UNK
     Route: 048
     Dates: start: 20080118
  9. SENNOSIDE [Concomitant]
     Active Substance: SENNOSIDES
     Dosage: 12 MG, UNK
     Route: 048
  10. CIMZIA [Suspect]
     Active Substance: CERTOLIZUMAB PEGOL
     Dosage: BIWEEKLY 200 MG, EV 2 WEEKS(QOW)
     Route: 058
     Dates: start: 20140507, end: 20140520
  11. LOXOPROFEN SODIUM [Concomitant]
     Active Substance: LOXOPROFEN SODIUM
     Dosage: 180 MG, UNK
     Route: 048
     Dates: start: 20071012
  12. AZULFIDINE EN-TABS [Concomitant]
     Active Substance: SULFASALAZINE
     Dosage: 100 MG, UNK
     Dates: start: 20140523
  13. IGURATIMOD [Concomitant]
     Active Substance: IGURATIMOD

REACTIONS (2)
  - Pneumocystis jirovecii pneumonia [Recovered/Resolved]
  - Angina pectoris [Unknown]

NARRATIVE: CASE EVENT DATE: 2014
